FAERS Safety Report 12682175 (Version 2)
Quarter: 2017Q1

REPORT INFORMATION
  Report Type: Spontaneous
  Country: CA (occurrence: CA)
  Receive Date: 20160824
  Receipt Date: 20170222
  Transmission Date: 20170428
  Serious: Yes (Hospitalization)
  Sender: FDA-Public Use
  Company Number: CA-BEH-2016071534

PATIENT
  Age: 65 Year
  Sex: Male
  Weight: 80 kg

DRUGS (6)
  1. PRIVIGEN [Suspect]
     Active Substance: HUMAN IMMUNOGLOBULIN G
     Indication: GUILLAIN-BARRE SYNDROME
     Dosage: 1600 ML, TOT
     Route: 042
     Dates: start: 20150322, end: 20150322
  2. PRIVIGEN [Suspect]
     Active Substance: HUMAN IMMUNOGLOBULIN G
     Dosage: 5 G, OD
     Route: 042
     Dates: start: 20150322, end: 20150325
  3. VENTOLIN [Concomitant]
     Active Substance: ALBUTEROL SULFATE
     Dosage: 100 MG, UNK
     Route: 055
  4. PRIVIGEN [Suspect]
     Active Substance: HUMAN IMMUNOGLOBULIN G
     Dosage: 200 ML, TOT
     Route: 042
     Dates: start: 20150322, end: 20150322
  5. FLOVENT [Concomitant]
     Active Substance: FLUTICASONE PROPIONATE
     Dosage: 250 MG, OD
     Route: 055
  6. ASA [Concomitant]
     Active Substance: ASPIRIN
     Dosage: 80 MG, OD
     Route: 065

REACTIONS (14)
  - Haemoglobin decreased [Recovered/Resolved]
  - Bilirubin conjugated increased [Recovered/Resolved]
  - Transfusion reaction [Recovered/Resolved]
  - Blood lactate dehydrogenase increased [Recovered/Resolved]
  - Jaundice [Recovered/Resolved]
  - Neck pain [Recovered/Resolved]
  - Anti A antibody positive [Recovered/Resolved]
  - Blood bilirubin unconjugated increased [Recovered/Resolved]
  - Haemolysis [Recovered/Resolved]
  - Headache [Recovered/Resolved]
  - Body temperature increased [Recovered/Resolved]
  - Anti B antibody positive [Recovered/Resolved]
  - Coombs direct test positive [Recovered/Resolved]
  - Chromaturia [Recovered/Resolved]

NARRATIVE: CASE EVENT DATE: 20150322
